FAERS Safety Report 9859465 (Version 2)
Quarter: 2014Q2

REPORT INFORMATION
  Report Type: Report from Study
  Country: US (occurrence: US)
  Receive Date: 20140131
  Receipt Date: 20140513
  Transmission Date: 20141212
  Serious: Yes (Other)
  Sender: FDA-Public Use
  Company Number: US-BAYER-2014-013115

PATIENT
  Age: 61 Year
  Sex: Female

DRUGS (3)
  1. BETASERON [Suspect]
     Indication: RELAPSING-REMITTING MULTIPLE SCLEROSIS
     Dosage: 8 MIU, QOD
     Route: 058
     Dates: start: 201112
  2. COPAXONE [Suspect]
     Dosage: UNK
     Dates: start: 20110615, end: 201112
  3. TYLENOL COLD [PARACETAMOL] [Concomitant]
     Indication: PREMEDICATION

REACTIONS (19)
  - Liver disorder [Not Recovered/Not Resolved]
  - Multiple sclerosis relapse [Not Recovered/Not Resolved]
  - Multiple sclerosis relapse [Not Recovered/Not Resolved]
  - Haemorrhagic diathesis [Not Recovered/Not Resolved]
  - Injury [Not Recovered/Not Resolved]
  - Balance disorder [Not Recovered/Not Resolved]
  - Nasopharyngitis [None]
  - Pleurisy [None]
  - Chills [Not Recovered/Not Resolved]
  - Respiration abnormal [None]
  - Asthenia [None]
  - Pyrexia [None]
  - Pain [None]
  - Multiple sclerosis [None]
  - Nausea [None]
  - Hypoaesthesia [None]
  - Hallucination, auditory [None]
  - Blood thyroid stimulating hormone increased [None]
  - Vitamin D deficiency [None]
